FAERS Safety Report 9185017 (Version 1)
Quarter: 2013Q1

REPORT INFORMATION
  Report Type: Spontaneous
  Country: US (occurrence: US)
  Receive Date: 20130325
  Receipt Date: 20130325
  Transmission Date: 20140127
  Serious: No
  Sender: FDA-Public Use
  Company Number: US-009507513-1303USA009633

PATIENT
  Sex: Male

DRUGS (2)
  1. MIRALAX [Suspect]
     Indication: GASTROINTESTINAL MOTILITY DISORDER
     Dosage: 34 G, ONCE
     Route: 048
     Dates: start: 20130122
  2. MIRALAX [Suspect]
     Indication: ANAL SEX

REACTIONS (2)
  - Diarrhoea [Not Recovered/Not Resolved]
  - Overdose [Not Recovered/Not Resolved]
